FAERS Safety Report 8738143 (Version 3)
Quarter: 2013Q1

REPORT INFORMATION
  Report Type: Report from Study
  Country: US (occurrence: US)
  Receive Date: 20120823
  Receipt Date: 20130213
  Transmission Date: 20140127
  Serious: Yes (Other)
  Sender: FDA-Public Use
  Company Number: US-009507513-1208USA008599

PATIENT
  Age: 69 Year
  Sex: Male
  Weight: 70.3 kg

DRUGS (4)
  1. TAFLUPROST [Suspect]
     Indication: OCULAR HYPERTENSION
     Dosage: 1.00 GTT, QD
     Route: 047
     Dates: start: 20120803, end: 20120808
  2. STUDY DRUG (UNSPECIFIED) [Suspect]
     Indication: OCULAR HYPERTENSION
     Dosage: 1 GTT, QD
     Route: 047
     Dates: start: 20120803, end: 20120808
  3. FUROSEMIDE [Concomitant]
  4. LEVOTHYROXINE SODIUM [Concomitant]

REACTIONS (1)
  - Iritis [Recovered/Resolved]
